FAERS Safety Report 22659912 (Version 1)
Quarter: 2023Q2

REPORT INFORMATION
  Report Type: Spontaneous
  Country: US (occurrence: None)
  Receive Date: 20230630
  Receipt Date: 20230630
  Transmission Date: 20230722
  Serious: No
  Sender: FDA-Public Use
  Company Number: None

PATIENT
  Age: 52 Year
  Sex: Female
  Weight: 58.95 kg

DRUGS (9)
  1. PAXLOVID [Suspect]
     Active Substance: NIRMATRELVIR\RITONAVIR
     Indication: COVID-19
     Dosage: FREQUENCY : TWICE A DAY;?
     Route: 048
     Dates: start: 20230630, end: 20230630
  2. ESTROGENS [Concomitant]
     Active Substance: ESTROGENS
  3. LINZESS [Concomitant]
     Active Substance: LINACLOTIDE
  4. CALCIUM [Concomitant]
     Active Substance: CALCIUM
  5. VITAMIN D NOS [Concomitant]
     Active Substance: VITAMIN D NOS
  6. ZYRTEC [Concomitant]
     Active Substance: CETIRIZINE HYDROCHLORIDE
  7. FIBERCON [Concomitant]
     Active Substance: CALCIUM POLYCARBOPHIL
  8. VITAMINS [Concomitant]
     Active Substance: VITAMINS
  9. PROBIOTICS NOS [Concomitant]
     Active Substance: PROBIOTICS NOS

REACTIONS (4)
  - Oral pruritus [None]
  - Pruritus [None]
  - Chest discomfort [None]
  - Hypersensitivity [None]

NARRATIVE: CASE EVENT DATE: 20230630
